FAERS Safety Report 24234600 (Version 4)
Quarter: 2025Q1

REPORT INFORMATION
  Report Type: Spontaneous
  Country: US (occurrence: US)
  Receive Date: 20240821
  Receipt Date: 20250109
  Transmission Date: 20250408
  Serious: No
  Sender: PFIZER
  Company Number: US-PFIZER INC-202400239458

PATIENT
  Age: 64 Year
  Sex: Male

DRUGS (1)
  1. XELJANZ XR [Suspect]
     Active Substance: TOFACITINIB CITRATE
     Indication: Pain
     Dosage: 11 MG, DAILY
     Route: 048
     Dates: end: 20240812

REACTIONS (5)
  - Condition aggravated [Unknown]
  - Therapeutic product effect incomplete [Not Recovered/Not Resolved]
  - Peripheral swelling [Unknown]
  - Sensitivity to weather change [Unknown]
  - Gait disturbance [Unknown]
